FAERS Safety Report 4479966-X (Version None)
Quarter: 2004Q4

REPORT INFORMATION
  Report Type: 
  Country: None (occurrence: None)
  Receive Date: 20041018
  Receipt Date: 20041008
  Transmission Date: 20050328
  Serious: Yes (Other)
  Sender: FDA-Public Use
  Company Number: DEU-2004-0001025

PATIENT
  Age: 22 Year
  Sex: Male

DRUGS (1)
  1. MORPHINE SULFATE [Suspect]
     Dosage: 600 MG, SEE TEXT, INTRAVENOUS
     Route: 042

REACTIONS (2)
  - ABSCESS LIMB [None]
  - INTENTIONAL MISUSE [None]
